FAERS Safety Report 6569190-9 (Version None)
Quarter: 2010Q1

REPORT INFORMATION
  Report Type: 
  Country: None (occurrence: None)
  Receive Date: 20100201
  Receipt Date: 20100201
  Transmission Date: 20100710
  Serious: Yes (Other)
  Sender: FDA-Public Use
  Company Number: None

PATIENT

DRUGS (1)
  1. MIRENA [Suspect]

REACTIONS (3)
  - ERYTHEMA NODOSUM [None]
  - OEDEMA PERIPHERAL [None]
  - PAIN IN EXTREMITY [None]
